FAERS Safety Report 16432295 (Version 1)
Quarter: 2019Q2

REPORT INFORMATION
  Report Type: Spontaneous
  Country: US (occurrence: US)
  Receive Date: 20190614
  Receipt Date: 20190614
  Transmission Date: 20190711
  Serious: No
  Sender: FDA-Public Use
  Company Number: US-JNJFOC-20170319017

PATIENT
  Sex: Female
  Weight: 90.72 kg

DRUGS (1)
  1. RISPERIDONE M-TAB [Suspect]
     Active Substance: RISPERIDONE
     Indication: AUTISM SPECTRUM DISORDER
     Dosage: STARTED YEARS AGO
     Route: 048

REACTIONS (2)
  - Taste disorder [Unknown]
  - Product availability issue [Unknown]
